FAERS Safety Report 6043228-X (Version None)
Quarter: 2009Q1

REPORT INFORMATION
  Report Type: 
  Country: None (occurrence: None)
  Receive Date: 20090119
  Receipt Date: 20090106
  Transmission Date: 20090719
  Serious: Yes (Other)
  Sender: FDA-Public Use
  Company Number: FR-ELI_LILLY_AND_COMPANY-FR200809006729

PATIENT
  Age: 73 Year
  Sex: Male
  Weight: 82 kg

DRUGS (6)
  1. CYMBALTA [Suspect]
     Indication: DEPRESSION
     Dosage: 60 MG, DAILY (1/D)
     Route: 048
     Dates: start: 20080605, end: 20080926
  2. FLECAINE [Concomitant]
     Indication: ARRHYTHMIA
     Dosage: 200 MG, DAILY (1/D)
     Route: 048
  3. SOTALOL HCL [Concomitant]
     Indication: ARRHYTHMIA
     Dosage: 80 MG, DAILY (1/D)
     Route: 048
  4. SIMVASTATIN [Concomitant]
     Indication: HYPERLIPIDAEMIA
     Dosage: 40 MG, DAILY (1/D)
     Route: 048
  5. PREVISCAN [Concomitant]
     Indication: ARRHYTHMIA
     Dosage: 30 MG, DAILY (1/D)
     Route: 048
  6. COAPROVEL [Concomitant]
     Indication: HYPERTENSION
     Dosage: 300/25, UNKNOWN
     Route: 048

REACTIONS (5)
  - ALANINE AMINOTRANSFERASE INCREASED [None]
  - BLOOD CHOLESTEROL INCREASED [None]
  - BLOOD TRIGLYCERIDES INCREASED [None]
  - GAMMA-GLUTAMYLTRANSFERASE INCREASED [None]
  - HEPATIC STEATOSIS [None]
